FAERS Safety Report 15908513 (Version 1)
Quarter: 2019Q1

REPORT INFORMATION
  Report Type: Spontaneous
  Country: CN (occurrence: CN)
  Receive Date: 20190204
  Receipt Date: 20190204
  Transmission Date: 20190417
  Serious: Yes (Other)
  Sender: FDA-Public Use
  Company Number: CN-PFIZER INC-2019044495

PATIENT
  Age: 44 Year
  Sex: Female
  Weight: 41 kg

DRUGS (4)
  1. PHARMORUBICIN [Suspect]
     Active Substance: EPIRUBICIN
     Indication: BREAST CANCER FEMALE
     Dosage: 110 MG, 1X/DAY (PUMP INJECTION)
     Dates: start: 20181127, end: 20181127
  2. SODIUM CHLORIDE. [Concomitant]
     Active Substance: SODIUM CHLORIDE
     Dosage: 500 ML, 1X/DAY (PUMP INJECTION)
     Dates: start: 20181127, end: 20181127
  3. ENDOXAN-BAXTER [Suspect]
     Active Substance: CYCLOPHOSPHAMIDE
     Indication: BREAST CANCER FEMALE
     Dosage: 800 MG, 1X/DAY (PUMP INJECTION)
     Dates: start: 20181127, end: 20181127
  4. SODIUM CHLORIDE. [Concomitant]
     Active Substance: SODIUM CHLORIDE
     Dosage: 100 ML, 1X/DAY (PUMP INJECTION)
     Dates: start: 20181127, end: 20181127

REACTIONS (3)
  - Bone marrow failure [Unknown]
  - Neutrophil count decreased [Recovered/Resolved]
  - White blood cell count decreased [Recovered/Resolved]

NARRATIVE: CASE EVENT DATE: 20181207
